FAERS Safety Report 4907206-3 (Version None)
Quarter: 2006Q1

REPORT INFORMATION
  Report Type: 
  Country: None (occurrence: None)
  Receive Date: 20060207
  Receipt Date: 20060125
  Transmission Date: 20060701
  Serious: Yes (Hospitalization)
  Sender: FDA-Public Use
  Company Number: US200601004414

PATIENT
  Age: 62 Year
  Sex: Male

DRUGS (3)
  1. ALIMTA [Suspect]
     Indication: LUNG CANCER METASTATIC
     Dates: start: 20050101, end: 20051201
  2. ZOMETA [Concomitant]
  3. CELEBREX [Concomitant]

REACTIONS (7)
  - ABDOMINAL DISTENSION [None]
  - ANAEMIA [None]
  - ERYTHEMA [None]
  - FEELING HOT [None]
  - OEDEMA PERIPHERAL [None]
  - PAIN IN EXTREMITY [None]
  - SKIN EXFOLIATION [None]
